FAERS Safety Report 17779755 (Version 2)
Quarter: 2020Q2

REPORT INFORMATION
  Report Type: Spontaneous
  Country: US (occurrence: US)
  Receive Date: 20200514
  Receipt Date: 20200518
  Transmission Date: 20200714
  Serious: Yes (Other)
  Sender: FDA-Public Use
  Company Number: US-CIPLA LTD.-2020US03176

PATIENT

DRUGS (2)
  1. DECITABINE. [Suspect]
     Active Substance: DECITABINE
     Indication: REFRACTORY ANAEMIA WITH AN EXCESS OF BLASTS
     Dosage: UNK, 3 CYCLES
     Route: 065
  2. AZACITIDINE. [Suspect]
     Active Substance: AZACITIDINE
     Indication: MYELODYSPLASTIC SYNDROME
     Dosage: UNK, 2 CYCLES
     Route: 065

REACTIONS (4)
  - Pyrexia [Unknown]
  - Febrile neutropenia [Unknown]
  - Cytopenia [Unknown]
  - Epistaxis [Unknown]
